FAERS Safety Report 4446076-7 (Version None)
Quarter: 2004Q3

REPORT INFORMATION
  Report Type: 
  Country: None (occurrence: None)
  Receive Date: 20040907
  Receipt Date: 20040820
  Transmission Date: 20050211
  Serious: Yes (Hospitalization)
  Sender: FDA-Public Use
  Company Number: 194828

PATIENT
  Sex: Male
  Weight: 78.0187 kg

DRUGS (6)
  1. AVONEX [Suspect]
     Indication: MULTIPLE SCLEROSIS
     Dosage: 30 MCG QW IM
     Route: 030
     Dates: start: 20010901
  2. PROVIGIL [Concomitant]
  3. PAXIL [Concomitant]
  4. CLONAZEPAM [Concomitant]
  5. ALBUTEROL [Concomitant]
  6. ATROVENT [Concomitant]

REACTIONS (20)
  - BLOOD TRIGLYCERIDES INCREASED [None]
  - BRONCHITIS [None]
  - CARDIAC ARREST [None]
  - COMPARTMENT SYNDROME [None]
  - CONCUSSION [None]
  - CONDITION AGGRAVATED [None]
  - DEPRESSION [None]
  - DIARRHOEA [None]
  - FAECES DISCOLOURED [None]
  - FOREARM FRACTURE [None]
  - HAEMORRHAGE [None]
  - HEART RATE IRREGULAR [None]
  - LIVER DISORDER [None]
  - LOWER LIMB FRACTURE [None]
  - MITRAL VALVE PROLAPSE [None]
  - MULTIPLE SCLEROSIS RELAPSE [None]
  - NERVE INJURY [None]
  - RESPIRATORY DISORDER [None]
  - ROAD TRAFFIC ACCIDENT [None]
  - STRESS SYMPTOMS [None]
